FAERS Safety Report 5163041-5 (Version None)
Quarter: 2006Q4

REPORT INFORMATION
  Report Type: 
  Country: None (occurrence: None)
  Receive Date: 20061201
  Receipt Date: 20000822
  Transmission Date: 20070319
  Serious: Yes (Hospitalization, Disabling)
  Sender: FDA-Public Use
  Company Number: FR-BOEHRINGER INGELHEIM PHARMACEUTICALS, INC.-2000-FF-S0550

PATIENT
  Sex: Male
  Weight: 7 kg

DRUGS (9)
  1. VIRAMUNE [Suspect]
     Indication: ACQUIRED IMMUNODEFICIENCY SYNDROME
     Route: 048
     Dates: start: 19990712, end: 20000210
  2. RETROVIR [Concomitant]
     Indication: VERTICAL INFECTION TRANSMISSION
     Route: 048
     Dates: start: 19990712, end: 19990813
  3. ZERIT [Concomitant]
     Indication: VERTICAL INFECTION TRANSMISSION
     Route: 048
     Dates: start: 19990810, end: 20000210
  4. EPIVIR [Concomitant]
     Indication: VERTICAL INFECTION TRANSMISSION
     Route: 048
     Dates: start: 19990810, end: 20000210
  5. ZERIT [Concomitant]
     Route: 064
     Dates: end: 19990601
  6. VIDEX [Concomitant]
     Indication: VERTICAL INFECTION TRANSMISSION
     Route: 064
     Dates: start: 19990701
  7. VIRACEPT [Concomitant]
     Indication: VERTICAL INFECTION TRANSMISSION
     Route: 064
     Dates: end: 19990601
  8. RETROVIR [Concomitant]
     Route: 064
     Dates: start: 19990701
  9. RETROVIR [Concomitant]
     Route: 064
     Dates: start: 19990712, end: 19990712

REACTIONS (4)
  - BLOOD LACTIC ACID INCREASED [None]
  - MITOCHONDRIAL TOXICITY [None]
  - NYSTAGMUS [None]
  - PYRAMIDAL TRACT SYNDROME [None]
